FAERS Safety Report 20607429 (Version 1)
Quarter: 2022Q1

REPORT INFORMATION
  Report Type: Spontaneous
  Country: CA (occurrence: CA)
  Receive Date: 20220317
  Receipt Date: 20220317
  Transmission Date: 20220423
  Serious: Yes (Other)
  Sender: FDA-Public Use
  Company Number: CA-PFIZER INC-2021526274

PATIENT
  Age: 87 Year
  Sex: Female

DRUGS (9)
  1. XELJANZ [Interacting]
     Active Substance: TOFACITINIB CITRATE
     Indication: Rheumatoid arthritis
     Dosage: 5 MG, 1X/DAY
     Route: 048
  2. XELJANZ [Interacting]
     Active Substance: TOFACITINIB CITRATE
     Dosage: 5 MG, 1X/DAY
     Route: 048
     Dates: end: 2021
  3. XELJANZ [Interacting]
     Active Substance: TOFACITINIB CITRATE
     Dosage: 5 MG, 1X/DAY
     Route: 048
     Dates: end: 20210605
  4. XELJANZ [Interacting]
     Active Substance: TOFACITINIB CITRATE
     Dosage: 5 MG, 2X/DAY
     Route: 048
  5. METHOTREXATE SODIUM [Concomitant]
     Active Substance: METHOTREXATE SODIUM
     Indication: Rheumatoid arthritis
     Dosage: 1 DF DOSAGE INFORMATION NOT AVAILABLE/ 2-3 YEARS. STILL TAKING IT
  6. ROBAXACET [Concomitant]
     Active Substance: ACETAMINOPHEN\METHOCARBAMOL
     Dosage: 100/325 MG , 2X/DAY
  7. ROBAXACET [Concomitant]
     Active Substance: ACETAMINOPHEN\METHOCARBAMOL
     Dosage: 100/325 MG , 2X/DAY
     Dates: start: 20210605
  8. CARVEDILOL [Concomitant]
     Active Substance: CARVEDILOL
  9. GALANTAMINE [Concomitant]
     Active Substance: GALANTAMINE

REACTIONS (6)
  - Bradycardia [Unknown]
  - Pain [Not Recovered/Not Resolved]
  - Sedation [Unknown]
  - Mobility decreased [Unknown]
  - Drug interaction [Unknown]
  - Confusional state [Unknown]
